FAERS Safety Report 20161657 (Version 4)
Quarter: 2022Q2

REPORT INFORMATION
  Report Type: Report from Study
  Country: US (occurrence: US)
  Receive Date: 20211208
  Receipt Date: 20220627
  Transmission Date: 20220721
  Serious: Yes (Hospitalization, Other)
  Sender: FDA-Public Use
  Company Number: US-TAKEDA-2021TUS077133

PATIENT
  Sex: Female

DRUGS (8)
  1. TEDUGLUTIDE [Suspect]
     Active Substance: TEDUGLUTIDE
     Indication: Short-bowel syndrome
     Dosage: 5.3 MILLIGRAM, QD
     Route: 042
     Dates: start: 20210120, end: 20210215
  2. TEDUGLUTIDE [Suspect]
     Active Substance: TEDUGLUTIDE
     Indication: Short-bowel syndrome
     Dosage: 5.3 MILLIGRAM, QD
     Route: 042
     Dates: start: 20210120, end: 20210215
  3. TEDUGLUTIDE [Suspect]
     Active Substance: TEDUGLUTIDE
     Indication: Short-bowel syndrome
     Dosage: 5.3 MILLIGRAM, QD
     Route: 042
     Dates: start: 20210120, end: 20210215
  4. TEDUGLUTIDE [Suspect]
     Active Substance: TEDUGLUTIDE
     Indication: Short-bowel syndrome
     Dosage: 5.3 MILLIGRAM, QD
     Route: 042
     Dates: start: 20210120, end: 20210215
  5. TEDUGLUTIDE [Suspect]
     Active Substance: TEDUGLUTIDE
     Dosage: 5.3 MILLIGRAM, QD
     Route: 042
     Dates: start: 20210402
  6. TEDUGLUTIDE [Suspect]
     Active Substance: TEDUGLUTIDE
     Dosage: 5.3 MILLIGRAM, QD
     Route: 042
     Dates: start: 20210402
  7. TEDUGLUTIDE [Suspect]
     Active Substance: TEDUGLUTIDE
     Dosage: 5.3 MILLIGRAM, QD
     Route: 042
     Dates: start: 20210402
  8. TEDUGLUTIDE [Suspect]
     Active Substance: TEDUGLUTIDE
     Dosage: 5.3 MILLIGRAM, QD
     Route: 042
     Dates: start: 20210402

REACTIONS (2)
  - Vascular device infection [Recovered/Resolved]
  - Dehydration [Recovered/Resolved]
